FAERS Safety Report 13506265 (Version 1)
Quarter: 2017Q2

REPORT INFORMATION
  Report Type: Spontaneous
  Country: US (occurrence: US)
  Receive Date: 20170502
  Receipt Date: 20170502
  Transmission Date: 20170830
  Serious: Yes (Hospitalization)
  Sender: FDA-Public Use
  Company Number: US-ROCHE-1525043

PATIENT
  Sex: Male

DRUGS (2)
  1. AVASTIN [Suspect]
     Active Substance: BEVACIZUMAB
     Indication: COLORECTAL CANCER
     Dosage: STOPPED TAKING IT 27 WEEKS AGO
     Route: 065
     Dates: start: 2014
  2. VECTIBIX [Concomitant]
     Active Substance: PANITUMUMAB
     Indication: COLORECTAL CANCER
     Dosage: DISCONTINUED IT 2 WEEKS AGO
     Route: 065

REACTIONS (3)
  - Haemorrhage [Unknown]
  - Drug ineffective [Unknown]
  - Malignant neoplasm progression [Unknown]
